FAERS Safety Report 5463844-3 (Version None)
Quarter: 2007Q3

REPORT INFORMATION
  Report Type: 
  Country: None (occurrence: None)
  Receive Date: 20070919
  Receipt Date: 20070912
  Transmission Date: 20080115
  Serious: Yes (Hospitalization)
  Sender: FDA-Public Use
  Company Number: 2007SP008155

PATIENT
  Age: 67 Year
  Sex: Female
  Weight: 66.3 kg

DRUGS (1)
  1. TEMOZOLOMIDE [Suspect]
     Indication: GLIOBLASTOMA MULTIFORME
     Dosage: 75 MG/M2; QD;PO
     Route: 048
     Dates: start: 20070309, end: 20070415

REACTIONS (8)
  - COGNITIVE DISORDER [None]
  - CONVULSION [None]
  - HAEMOGLOBIN DECREASED [None]
  - MUSCLE TWITCHING [None]
  - PLATELET COUNT DECREASED [None]
  - PNEUMONIA [None]
  - PULMONARY EMBOLISM [None]
  - WHITE BLOOD CELL COUNT DECREASED [None]
